FAERS Safety Report 14968463 (Version 1)
Quarter: 2018Q2

REPORT INFORMATION
  Report Type: Report from Study
  Country: DE (occurrence: DE)
  Receive Date: 20180604
  Receipt Date: 20180604
  Transmission Date: 20180711
  Serious: Yes (Life-Threatening, Hospitalization)
  Sender: FDA-Public Use
  Company Number: DE-ACCORD-067647

PATIENT
  Age: 7 Decade
  Sex: Female

DRUGS (5)
  1. ORENCIA [Concomitant]
     Active Substance: ABATACEPT
     Dosage: DOSAGE FORM: UNSPECIFIED
     Dates: start: 201701
  2. METHOTREXATE. [Suspect]
     Active Substance: METHOTREXATE
     Indication: PRODUCT USED FOR UNKNOWN INDICATION
     Dosage: ALSO RECEIVED FROM JUL-2008 TO JAN-2010, ON 12-SEP-2016
     Dates: start: 201003, end: 20160815
  3. SIMPONI [Suspect]
     Active Substance: GOLIMUMAB
     Indication: RHEUMATOID ARTHRITIS
     Dosage: ALSO RECEIVED ON JUL-2016
     Route: 058
     Dates: start: 201112
  4. MABTHERA [Concomitant]
     Active Substance: RITUXIMAB
     Dosage: DOSAGE FORM: UNSPECIFIED
     Dates: start: 20110704
  5. PREDNISOLONE. [Concomitant]
     Active Substance: PREDNISOLONE
     Dosage: DOSE: 7.5 MG TO 10 MG

REACTIONS (6)
  - Pulmonary sepsis [Recovered/Resolved]
  - Pulmonary embolism [Unknown]
  - Pancytopenia [Recovered/Resolved]
  - Urosepsis [Unknown]
  - Abscess [Unknown]
  - Subdural empyema [Unknown]

NARRATIVE: CASE EVENT DATE: 20160407
